FAERS Safety Report 9209370 (Version 1)
Quarter: 2013Q1

REPORT INFORMATION
  Report Type: Spontaneous
  Country: US (occurrence: None)
  Receive Date: 20120817
  Receipt Date: 20120817
  Transmission Date: 20140127
  Serious: Yes (Hospitalization)
  Sender: FDA-Public Use
  Company Number: 135790

PATIENT
  Age: 31 Year
  Sex: Female

DRUGS (1)
  1. CYTARABINE [Suspect]
     Indication: ACUTE MYELOID LEUKAEMIA
     Dosage: 1 GRAM/MW (2380MG DAILY)
     Route: 042
     Dates: start: 20120427

REACTIONS (2)
  - Febrile neutropenia [None]
  - Bacteraemia [None]
